FAERS Safety Report 8529680-6 (Version None)
Quarter: 2012Q2

REPORT INFORMATION
  Report Type: 
  Country: None (occurrence: None)
  Receive Date: 20120410
  Receipt Date: 20111028
  Transmission Date: 20120825
  Serious: Yes (Other)
  Sender: FDA-Public Use
  Company Number: 20110774

PATIENT
  Age: 38 Year
  Sex: Female

DRUGS (1)
  1. DEXFERRUM [Suspect]
     Indication: PRODUCT USED FOR UNKNOWN INDICATION
     Dosage: TEST DOSE 25MG/0.5ML

REACTIONS (1)
  - ANAPHYLACTIC REACTION [None]
